FAERS Safety Report 25095926 (Version 1)
Quarter: 2025Q1

REPORT INFORMATION
  Report Type: Report from Study
  Country: CA (occurrence: CA)
  Receive Date: 20250319
  Receipt Date: 20250319
  Transmission Date: 20250408
  Serious: Yes (Other)
  Sender: JOHNSON AND JOHNSON
  Company Number: CA-JNJFOC-20241270077

PATIENT
  Age: 62 Year
  Sex: Female

DRUGS (2)
  1. TREMFYA [Suspect]
     Active Substance: GUSELKUMAB
     Indication: Psoriasis
     Dosage: MOST RECENT DOSE ADMINISTERED ON 16-JAN-2025
     Route: 058
     Dates: start: 20241220
  2. TREMFYA [Suspect]
     Active Substance: GUSELKUMAB

REACTIONS (6)
  - Lower respiratory tract infection [Recovering/Resolving]
  - Hypertension [Recovered/Resolved]
  - Carpal tunnel decompression [Recovered/Resolved]
  - Headache [Recovered/Resolved]
  - Impaired healing [Unknown]
  - Procedural pain [Unknown]

NARRATIVE: CASE EVENT DATE: 20241220
